FAERS Safety Report 10399035 (Version 1)
Quarter: 2014Q3

REPORT INFORMATION
  Report Type: Spontaneous
  Country: JP (occurrence: JP)
  Receive Date: 20140821
  Receipt Date: 20140821
  Transmission Date: 20150326
  Serious: Yes (Other)
  Sender: FDA-Public Use
  Company Number: PHHY2014JP101288

PATIENT

DRUGS (7)
  1. APRESOLIN [Suspect]
     Active Substance: HYDRALAZINE HYDROCHLORIDE
     Route: 064
  2. INSULIN LISPRO [Suspect]
     Active Substance: INSULIN LISPRO
     Route: 064
  3. INSULIN LISPRO [Suspect]
     Active Substance: INSULIN LISPRO
     Dosage: 48 IU, UNK
     Route: 064
  4. INSULIN [Suspect]
     Active Substance: INSULIN NOS
     Route: 064
  5. NICARDIPINE [Suspect]
     Active Substance: NICARDIPINE
     Route: 064
  6. METHYLDOPA. [Suspect]
     Active Substance: METHYLDOPA
     Route: 064
  7. AZELNIDIPINE [Suspect]
     Active Substance: AZELNIDIPINE
     Route: 064

REACTIONS (4)
  - Foetal growth restriction [Unknown]
  - Foetal disorder [Unknown]
  - Premature baby [Unknown]
  - Foetal exposure during pregnancy [Unknown]
